FAERS Safety Report 10370171 (Version 1)
Quarter: 2014Q3

REPORT INFORMATION
  Report Type: Report from Study
  Country: BR (occurrence: BR)
  Receive Date: 20140808
  Receipt Date: 20140808
  Transmission Date: 20150326
  Serious: Yes (Other)
  Sender: FDA-Public Use
  Company Number: PHHY2014BR096037

PATIENT
  Sex: Female
  Weight: 70 kg

DRUGS (4)
  1. GALVUS [Suspect]
     Active Substance: VILDAGLIPTIN
     Indication: OFF LABEL USE
  2. GALVUS [Suspect]
     Active Substance: VILDAGLIPTIN
     Indication: GLUCOSE TOLERANCE IMPAIRED
     Dosage: 2 DF, DAILY
  3. DIOVAN [Suspect]
     Active Substance: VALSARTAN
     Indication: HYPERTENSION
     Dosage: UNK UKN, UNK
  4. EXFORGE HCT [Suspect]
     Active Substance: AMLODIPINE BESYLATE\HYDROCHLOROTHIAZIDE\VALSARTAN
     Indication: HYPERTENSION
     Dosage: 1 DF, DAILY

REACTIONS (1)
  - Diabetes mellitus [Unknown]
